FAERS Safety Report 5861220-2 (Version None)
Quarter: 2008Q3

REPORT INFORMATION
  Report Type: 
  Country: None (occurrence: None)
  Receive Date: 20080827
  Receipt Date: 20080319
  Transmission Date: 20090109
  Serious: No
  Sender: FDA-Public Use
  Company Number: US-ABBOTT-08P-163-0443909-00

PATIENT
  Sex: Male
  Weight: 76.272 kg

DRUGS (3)
  1. NIASPAN [Suspect]
     Indication: BLOOD CHOLESTEROL INCREASED
     Route: 048
     Dates: start: 20050101, end: 20070101
  2. NIASPAN [Suspect]
     Dates: start: 20080101
  3. UNKNOWN MEDICATIONS [Concomitant]
     Indication: DRUG USE FOR UNKNOWN INDICATION

REACTIONS (3)
  - HIGH DENSITY LIPOPROTEIN DECREASED [None]
  - PRURITUS [None]
  - WEIGHT INCREASED [None]
